FAERS Safety Report 5764608-3 (Version None)
Quarter: 2008Q2

REPORT INFORMATION
  Report Type: 
  Country: None (occurrence: None)
  Receive Date: 20080611
  Receipt Date: 20080424
  Transmission Date: 20081010
  Serious: No
  Sender: FDA-Public Use
  Company Number: US-BAYER-200822495NA

PATIENT
  Age: 26 Year
  Sex: Female
  Weight: 57 kg

DRUGS (1)
  1. ULTRAVIST 300 [Suspect]
     Indication: COMPUTERISED TOMOGRAM
     Dosage: TOTAL DAILY DOSE: 60 ML
     Route: 042
     Dates: start: 20080101, end: 20080101

REACTIONS (4)
  - EAR PRURITUS [None]
  - PRURITUS [None]
  - SNEEZING [None]
  - THROAT IRRITATION [None]
